FAERS Safety Report 5192575-2 (Version None)
Quarter: 2006Q4

REPORT INFORMATION
  Report Type: 
  Country: None (occurrence: None)
  Receive Date: 20061220
  Receipt Date: 20061213
  Transmission Date: 20070319
  Serious: Yes (Death)
  Sender: FDA-Public Use
  Company Number: 163-20785-0611119

PATIENT
  Age: 3 Year
  Sex: Female

DRUGS (3)
  1. THALOMID [Suspect]
     Indication: BRAIN NEOPLASM
     Dosage: 50 MG, 1 IN 1 D, ORAL
     Route: 048
     Dates: start: 20060928, end: 20061116
  2. NYSTATIN [Concomitant]
  3. BACTRIM [Concomitant]

REACTIONS (2)
  - BRAIN STEM GLIOMA [None]
  - MALIGNANT NEOPLASM PROGRESSION [None]
